FAERS Safety Report 9862010 (Version 3)
Quarter: 2014Q1

REPORT INFORMATION
  Report Type: Spontaneous
  Country: GB (occurrence: GB)
  Receive Date: 20140203
  Receipt Date: 20140217
  Transmission Date: 20141002
  Serious: Yes (Hospitalization)
  Sender: FDA-Public Use
  Company Number: GB-JNJFOC-20140114671

PATIENT
  Age: 7 Month
  Sex: Female

DRUGS (1)
  1. MICRONOR [Suspect]
     Indication: PRODUCT USED FOR UNKNOWN INDICATION
     Route: 063

REACTIONS (4)
  - Respiratory disorder [Recovering/Resolving]
  - Exposure during breast feeding [Unknown]
  - Malaise [Recovering/Resolving]
  - Restlessness [Recovering/Resolving]
